FAERS Safety Report 4802411-9 (Version None)
Quarter: 2005Q4

REPORT INFORMATION
  Report Type: 
  Country: None (occurrence: None)
  Receive Date: 20051013
  Receipt Date: 20050929
  Transmission Date: 20060501
  Serious: Yes (Other)
  Sender: FDA-Public Use
  Company Number: 2005031962

PATIENT
  Age: 62 Year
  Sex: Male
  Weight: 140.6151 kg

DRUGS (7)
  1. BEXTRA [Suspect]
     Indication: RHEUMATOID ARTHRITIS
     Dosage: 20 MG (20 MG, 1 IN 1 D), ORAL
     Route: 048
     Dates: start: 20040101, end: 20050101
  2. CELEBREX [Suspect]
     Indication: RHEUMATOID ARTHRITIS
     Dosage: 600 MG (200 MG, 3 IN 1 D), ORAL
     Route: 048
     Dates: start: 20020101, end: 20050101
  3. VIOXX [Suspect]
     Indication: RHEUMATOID ARTHRITIS
     Dosage: UNKNOWN (1 IN 1 D), ORAL
     Route: 048
     Dates: start: 20040101, end: 20041001
  4. NAPROSYN [Suspect]
     Indication: RHEUMATOID ARTHRITIS
     Dosage: UNKNOWN, ORAL
     Route: 048
     Dates: start: 20040101
  5. INSULIN [Concomitant]
  6. COREG [Concomitant]
  7. ALL OTHER THERAPEUTIC PRODUCTS (ALL OTHER THERAPEUTIC PRODUCTS) [Concomitant]

REACTIONS (17)
  - ABDOMINAL PAIN [None]
  - ANGINA PECTORIS [None]
  - BLISTER [None]
  - CARDIAC DISORDER [None]
  - CARDIOMEGALY [None]
  - CONDITION AGGRAVATED [None]
  - DYSPEPSIA [None]
  - HEADACHE [None]
  - LUNG DISORDER [None]
  - NAUSEA [None]
  - PNEUMONIA [None]
  - POLLAKIURIA [None]
  - RASH [None]
  - RENAL DISORDER [None]
  - RENAL FAILURE [None]
  - RENAL PAIN [None]
  - UPPER RESPIRATORY TRACT INFECTION [None]
